FAERS Safety Report 16880328 (Version 1)
Quarter: 2019Q4

REPORT INFORMATION
  Report Type: Spontaneous
  Country: US (occurrence: US)
  Receive Date: 20191003
  Receipt Date: 20191003
  Transmission Date: 20200122
  Serious: No
  Sender: FDA-Public Use
  Company Number: US-TEVA-2019-US-1116328

PATIENT
  Sex: Female

DRUGS (1)
  1. WARFARIN [Suspect]
     Active Substance: WARFARIN
     Dosage: 5MG ON MONDAY, WEDNESDAY AND FRIDAY AND 6MG EVERY?OTHER DAY
     Route: 065

REACTIONS (1)
  - Drug hypersensitivity [Unknown]
